FAERS Safety Report 4764273-8 (Version None)
Quarter: 2005Q3

REPORT INFORMATION
  Report Type: 
  Country: None (occurrence: None)
  Receive Date: 20050907
  Receipt Date: 20050907
  Transmission Date: 20060218
  Serious: Yes (Disabling, Other)
  Sender: FDA-Public Use
  Company Number: None

PATIENT
  Sex: Male
  Weight: 82.5547 kg

DRUGS (9)
  1. ZOLOFT [Suspect]
     Indication: BIPOLAR I DISORDER
     Dosage: 50 MG INCREASED TO 200 MG
  2. ZOLOFT [Suspect]
     Indication: MAJOR DEPRESSION
     Dosage: 50 MG INCREASED TO 200 MG
  3. ATIVAN [Concomitant]
  4. ZYPREXA [Concomitant]
  5. NEUROLEPTICS [Concomitant]
  6. DESERIL [Concomitant]
  7. VALPROIC ACID [Concomitant]
  8. ANTIPSYCHOTICS [Concomitant]
  9. BENZOS [Concomitant]

REACTIONS (10)
  - AGITATION [None]
  - ANGER [None]
  - ANXIETY [None]
  - HOMELESS [None]
  - IMPULSE-CONTROL DISORDER [None]
  - INSOMNIA [None]
  - IRRITABILITY [None]
  - LOSS OF EMPLOYMENT [None]
  - MANIA [None]
  - NERVOUSNESS [None]
